FAERS Safety Report 26136518 (Version 1)
Quarter: 2025Q4

REPORT INFORMATION
  Report Type: Spontaneous
  Country: SA (occurrence: SA)
  Receive Date: 20251209
  Receipt Date: 20251209
  Transmission Date: 20260118
  Serious: Yes (Other)
  Sender: AMGEN
  Company Number: SA-AMGEN-SAUSP2025241179

PATIENT

DRUGS (2)
  1. ADALIMUMAB [Suspect]
     Active Substance: ADALIMUMAB
     Indication: Osteomyelitis chronic
     Dosage: UNK
     Route: 065
  2. ETANERCEPT [Suspect]
     Active Substance: ETANERCEPT
     Indication: Osteomyelitis chronic
     Dosage: UNK
     Route: 065

REACTIONS (4)
  - Spinal cord compression [Unknown]
  - Spinal stenosis [Unknown]
  - Limb asymmetry [Unknown]
  - Off label use [Unknown]
